FAERS Safety Report 13285305 (Version 2)
Quarter: 2017Q2

REPORT INFORMATION
  Report Type: Report from Study
  Country: US (occurrence: US)
  Receive Date: 20170301
  Receipt Date: 20170407
  Transmission Date: 20170830
  Serious: Yes (Other)
  Sender: FDA-Public Use
  Company Number: US-JNJFOC-20170223978

PATIENT
  Sex: Female

DRUGS (1)
  1. STELARA [Suspect]
     Active Substance: USTEKINUMAB
     Indication: CROHN^S DISEASE
     Route: 042
     Dates: start: 20161214

REACTIONS (4)
  - Pneumonia [Recovering/Resolving]
  - Drug dose omission [Unknown]
  - Gastric disorder [Recovering/Resolving]
  - Bronchitis [Recovering/Resolving]
